FAERS Safety Report 10014320 (Version 1)
Quarter: 2014Q1

REPORT INFORMATION
  Report Type: Spontaneous
  Country: US (occurrence: US)
  Receive Date: 20140317
  Receipt Date: 20140317
  Transmission Date: 20141002
  Serious: No
  Sender: FDA-Public Use
  Company Number: US-BIOGENIDEC-2014BI021821

PATIENT
  Age: 57 Year
  Sex: Female

DRUGS (7)
  1. TECFIDERA [Suspect]
     Indication: MULTIPLE SCLEROSIS
     Route: 048
     Dates: start: 20140221, end: 20140227
  2. TECFIDERA [Suspect]
     Indication: MULTIPLE SCLEROSIS
     Route: 048
     Dates: start: 20140228, end: 20140228
  3. TECFIDERA [Suspect]
     Indication: MULTIPLE SCLEROSIS
     Route: 048
     Dates: start: 20140301
  4. GABAPENTIN [Concomitant]
     Route: 048
     Dates: start: 20050401
  5. BUPROPION XL 300MG TABLET [Concomitant]
     Route: 048
     Dates: start: 20100428
  6. CELEBREX 200MG CAPSULE [Concomitant]
     Indication: ARTHRALGIA
     Route: 048
     Dates: start: 20061206
  7. CYMBALTA [Concomitant]
     Route: 048
     Dates: start: 20070109

REACTIONS (7)
  - Malaise [Recovered/Resolved]
  - Weight decreased [Recovered/Resolved]
  - Feeling abnormal [Not Recovered/Not Resolved]
  - Wrong technique in drug usage process [Not Recovered/Not Resolved]
  - Intentional drug misuse [Not Recovered/Not Resolved]
  - Abdominal pain upper [Recovered/Resolved]
  - Diarrhoea [Recovered/Resolved]
